FAERS Safety Report 9565971 (Version 2)
Quarter: 2013Q3

REPORT INFORMATION
  Report Type: Spontaneous
  Country: DE (occurrence: DE)
  Receive Date: 20130930
  Receipt Date: 20130930
  Transmission Date: 20140515
  Serious: Yes (Hospitalization, Other)
  Sender: FDA-Public Use
  Company Number: DE-ABBVIE-13P-062-1081054-00

PATIENT
  Age: 40 Year
  Sex: Male

DRUGS (5)
  1. HUMIRA [Suspect]
     Indication: PSORIATIC ARTHROPATHY
     Dates: start: 2005, end: 201301
  2. RAMIPRIL [Concomitant]
     Indication: CARDIAC FAILURE
  3. METOPOLOL [Concomitant]
     Indication: CARDIAC FAILURE
  4. TORASEMIDE [Concomitant]
     Indication: CARDIAC FAILURE
  5. PROCORALAN [Concomitant]
     Indication: CARDIAC FAILURE

REACTIONS (2)
  - Congestive cardiomyopathy [Recovering/Resolving]
  - Viral myocarditis [Unknown]
